FAERS Safety Report 6809557-4 (Version None)
Quarter: 2010Q2

REPORT INFORMATION
  Report Type: 
  Country: None (occurrence: None)
  Receive Date: 20100630
  Receipt Date: 20100618
  Transmission Date: 20101027
  Serious: Yes (Other)
  Sender: FDA-Public Use
  Company Number: PHHY2010CA38086

PATIENT

DRUGS (2)
  1. ALISKIREN ALI+ [Suspect]
     Dosage: 150 MG, QD
     Dates: start: 20100308
  2. ALISKIREN ALI+ [Suspect]
     Dosage: 300 MG, QD
     Route: 048
     Dates: start: 20100610

REACTIONS (1)
  - URINE ALBUMIN/CREATININE RATIO INCREASED [None]
